FAERS Safety Report 9451475 (Version 1)
Quarter: 2013Q3

REPORT INFORMATION
  Report Type: Spontaneous
  Country: US (occurrence: US)
  Receive Date: 20130810
  Receipt Date: 20130810
  Transmission Date: 20140515
  Serious: Yes (Other)
  Sender: FDA-Public Use
  Company Number: US-ROCHE-1259995

PATIENT
  Age: 61 Year
  Sex: Female

DRUGS (5)
  1. XOLAIR [Suspect]
     Indication: ASTHMA
     Dosage: THERAPY START DATE : 05/MAR/2013
     Route: 058
  2. SYMBICORT [Concomitant]
  3. PREDNISONE [Concomitant]
  4. VENTOLIN [Concomitant]
  5. NASONEX [Concomitant]

REACTIONS (7)
  - Pneumonia [Unknown]
  - Increased upper airway secretion [Unknown]
  - Wheezing [Unknown]
  - Back pain [Unknown]
  - Rales [Unknown]
  - Crepitations [Unknown]
  - Cough [Unknown]
